FAERS Safety Report 5199313-8 (Version None)
Quarter: 2006Q4

REPORT INFORMATION
  Report Type: 
  Country: None (occurrence: None)
  Receive Date: 20061229
  Receipt Date: 20061214
  Transmission Date: 20070319
  Serious: Yes (Death)
  Sender: FDA-Public Use
  Company Number: 2006S1011570

PATIENT
  Age: 5 Decade
  Sex: Female

DRUGS (1)
  1. FENTANYL TRANSDERMAL SYSTEM [Suspect]
     Dosage: ;TDER
     Dates: end: 20060611

REACTIONS (2)
  - DRUG TOXICITY [None]
  - OVERDOSE [None]
